FAERS Safety Report 11597999 (Version 1)
Quarter: 2015Q4

REPORT INFORMATION
  Report Type: Spontaneous
  Country: US (occurrence: US)
  Receive Date: 20151006
  Receipt Date: 20151006
  Transmission Date: 20160304
  Serious: No
  Sender: FDA-Public Use
  Company Number: US-ROCHE-1258572

PATIENT
  Age: 62 Year
  Sex: Female

DRUGS (2)
  1. ERIVEDGE [Suspect]
     Active Substance: VISMODEGIB
     Indication: LYMPHOMA
  2. ERIVEDGE [Suspect]
     Active Substance: VISMODEGIB
     Indication: SKIN CANCER
     Dosage: INTERRUPTED DUE TO BAD VIRUS?RESTARTED AGAIN
     Route: 048
     Dates: start: 20120914

REACTIONS (9)
  - Hypoaesthesia [Unknown]
  - Erythema [Recovered/Resolved]
  - Muscle spasms [Unknown]
  - Neuropathy peripheral [Recovering/Resolving]
  - Paraesthesia [Unknown]
  - Muscle spasms [Recovered/Resolved]
  - Hypoaesthesia [Recovered/Resolved]
  - Pain [Unknown]
  - Viral infection [Unknown]

NARRATIVE: CASE EVENT DATE: 20130720
